FAERS Safety Report 18418581 (Version 1)
Quarter: 2020Q4

REPORT INFORMATION
  Report Type: Spontaneous
  Country: AU (occurrence: AU)
  Receive Date: 20201023
  Receipt Date: 20201023
  Transmission Date: 20210114
  Serious: Yes (Other)
  Sender: FDA-Public Use
  Company Number: AU-NOVEN PHARMACEUTICALS, INC.-2020AU006364

PATIENT
  Age: 69 Year
  Sex: Female

DRUGS (2)
  1. ESTRADIOL/NORETHISTRONE ACETATE [Suspect]
     Active Substance: ESTRADIOL\NORETHINDRONE ACETATE
     Indication: MENOPAUSE
     Dosage: 50/ 140, 1 DF
     Route: 065
  2. ESTRADIOL/NORETHISTRONE ACETATE [Suspect]
     Active Substance: ESTRADIOL\NORETHINDRONE ACETATE
     Dosage: 50/250, 1 DF
     Route: 065

REACTIONS (6)
  - Stress [Unknown]
  - Feeling abnormal [Unknown]
  - Haemorrhage [Unknown]
  - Anxiety [Unknown]
  - Crying [Unknown]
  - Product supply issue [Unknown]
